FAERS Safety Report 7662769-2 (Version None)
Quarter: 2011Q3

REPORT INFORMATION
  Report Type: 
  Country: None (occurrence: None)
  Receive Date: 20110805
  Receipt Date: 20100830
  Transmission Date: 20111222
  Serious: No
  Sender: FDA-Public Use
  Company Number: US-ABBOTT-10P-163-0666805-00

PATIENT
  Sex: Female
  Weight: 92.616 kg

DRUGS (2)
  1. 18 UNKNOWN MEDICATIONS [Concomitant]
     Indication: PRODUCT USED FOR UNKNOWN INDICATION
  2. NIASPAN [Suspect]
     Indication: PRODUCT USED FOR UNKNOWN INDICATION
     Dosage: AT BEDTIME
     Dates: start: 20100828, end: 20100828

REACTIONS (2)
  - HYPOAESTHESIA [None]
  - PRURITUS GENERALISED [None]
